FAERS Safety Report 20558493 (Version 4)
Quarter: 2022Q1

REPORT INFORMATION
  Report Type: Spontaneous
  Country: US (occurrence: US)
  Receive Date: 20220307
  Receipt Date: 20220320
  Transmission Date: 20220423
  Serious: Yes (Hospitalization, Other)
  Sender: FDA-Public Use
  Company Number: US-SANOFI-01000465

PATIENT
  Sex: Male

DRUGS (2)
  1. LANTUS SOLOSTAR [Suspect]
     Active Substance: INSULIN GLARGINE
     Dosage: UNK
     Dates: start: 20220219
  2. GLIPIZIDE [Concomitant]
     Active Substance: GLIPIZIDE

REACTIONS (5)
  - Functional gastrointestinal disorder [Unknown]
  - Renal disorder [Unknown]
  - Bladder cancer stage IV [Unknown]
  - Dysuria [Unknown]
  - Blood glucose abnormal [Unknown]

NARRATIVE: CASE EVENT DATE: 20220302
